FAERS Safety Report 6030460-4 (Version None)
Quarter: 2009Q1

REPORT INFORMATION
  Report Type: 
  Country: None (occurrence: None)
  Receive Date: 20090105
  Receipt Date: 20090105
  Transmission Date: 20090719
  Serious: Yes (Hospitalization)
  Sender: FDA-Public Use
  Company Number: None

PATIENT
  Sex: Male
  Weight: 99.7913 kg

DRUGS (1)
  1. LEVAQUIN [Suspect]
     Indication: SINUSITIS
     Dosage: 1 TABLET 1 X DAY PO
     Route: 048
     Dates: start: 20081210, end: 20081220

REACTIONS (7)
  - ANXIETY [None]
  - DEPRESSION [None]
  - ILL-DEFINED DISORDER [None]
  - INSOMNIA [None]
  - NERVOUS SYSTEM DISORDER [None]
  - ORAL FUNGAL INFECTION [None]
  - PALPITATIONS [None]
